FAERS Safety Report 12257525 (Version 1)
Quarter: 2016Q2

REPORT INFORMATION
  Report Type: Report from Study
  Country: AR (occurrence: AR)
  Receive Date: 20160412
  Receipt Date: 20160412
  Transmission Date: 20160815
  Serious: Yes (Other)
  Sender: FDA-Public Use
  Company Number: AR-ABBVIE-16K-007-1600427-00

PATIENT
  Age: 37 Year
  Sex: Female

DRUGS (1)
  1. HUMIRA [Suspect]
     Active Substance: ADALIMUMAB
     Indication: COLITIS ULCERATIVE
     Route: 058
     Dates: start: 20140521

REACTIONS (4)
  - Exposure during pregnancy [Unknown]
  - Retained placenta or membranes [Unknown]
  - Hypertension [Unknown]
  - Hypertension [Unknown]

NARRATIVE: CASE EVENT DATE: 201603
